FAERS Safety Report 6407401-0 (Version None)
Quarter: 2009Q4

REPORT INFORMATION
  Report Type: 
  Country: None (occurrence: None)
  Receive Date: 20091020
  Receipt Date: 20091012
  Transmission Date: 20100525
  Serious: Yes (Life-Threatening, Hospitalization)
  Sender: FDA-Public Use
  Company Number: CN-BRACCO-000105

PATIENT
  Age: 69 Year
  Sex: Female

DRUGS (3)
  1. IOPAMIRO [Suspect]
     Indication: ANGIOGRAM
     Route: 042
     Dates: start: 20090928, end: 20090928
  2. IOPAMIRO [Suspect]
     Indication: INTRACRANIAL ANEURYSM
     Route: 042
     Dates: start: 20090928, end: 20090928
  3. EPINEPHRINE [Concomitant]

REACTIONS (3)
  - ANAPHYLACTOID REACTION [None]
  - CONDITION AGGRAVATED [None]
  - SUBARACHNOID HAEMORRHAGE [None]
